FAERS Safety Report 7790945-7 (Version None)
Quarter: 2011Q3

REPORT INFORMATION
  Report Type: 
  Country: None (occurrence: None)
  Receive Date: 20110930
  Receipt Date: 20110930
  Transmission Date: 20111222
  Serious: Yes (Other)
  Sender: FDA-Public Use
  Company Number: None

PATIENT
  Age: 41 Year
  Sex: Male
  Weight: 72.574 kg

DRUGS (2)
  1. FAMOTIDINE [Suspect]
     Indication: GASTROOESOPHAGEAL REFLUX DISEASE
     Dates: start: 20110921, end: 20110927
  2. FAMOTIDINE [Suspect]
     Indication: ABDOMINAL DISCOMFORT
     Dates: start: 20110921, end: 20110927

REACTIONS (2)
  - PALPITATIONS [None]
  - EXTRASYSTOLES [None]
